FAERS Safety Report 18101002 (Version 1)
Quarter: 2020Q3

REPORT INFORMATION
  Report Type: Spontaneous
  Country: US (occurrence: US)
  Receive Date: 20200731
  Receipt Date: 20200731
  Transmission Date: 20201103
  Serious: Yes (Hospitalization, Other)
  Sender: FDA-Public Use
  Company Number: US-PURDUE-USA-2020-0159248

PATIENT
  Sex: Female

DRUGS (5)
  1. DILAUDID [Suspect]
     Active Substance: HYDROMORPHONE HYDROCHLORIDE
     Indication: PAIN
     Route: 048
  2. OXYCONTIN [Suspect]
     Active Substance: OXYCODONE HYDROCHLORIDE
     Indication: PAIN
     Route: 048
  3. OXYCODONE HCL CR TABLETS (SIMILAR TO NDA 22?272) [Suspect]
     Active Substance: OXYCODONE HYDROCHLORIDE
     Indication: PAIN
     Route: 048
  4. OXYCODONE HCL TABLETS (RHODES 91?490) [Suspect]
     Active Substance: OXYCODONE HYDROCHLORIDE
     Indication: PAIN
     Route: 048
  5. OXYCODONE/ ACETAMINOPHEN TABLETS [Suspect]
     Active Substance: ACETAMINOPHEN\OXYCODONE HYDROCHLORIDE
     Indication: PAIN
     Route: 048

REACTIONS (37)
  - Chills [Unknown]
  - Back pain [Unknown]
  - Confusional state [Unknown]
  - Gastrointestinal disorder [Unknown]
  - Somnolence [Unknown]
  - Syncope [Unknown]
  - Depression [Unknown]
  - Vomiting [Unknown]
  - Pharyngeal swelling [Unknown]
  - Impaired healing [Unknown]
  - General physical health deterioration [Unknown]
  - Bladder pain [Unknown]
  - Hyperhidrosis [Unknown]
  - Obstructive defaecation [Unknown]
  - Rash [Unknown]
  - Muscular weakness [None]
  - Hypopnoea [Unknown]
  - Irritability [Unknown]
  - Vision blurred [Unknown]
  - Visual impairment [Unknown]
  - Fatigue [Unknown]
  - Sensory loss [Unknown]
  - Self esteem decreased [Unknown]
  - Nausea [None]
  - Psychiatric symptom [Unknown]
  - Cerebrovascular accident [Unknown]
  - Abdominal discomfort [Unknown]
  - Muscle atrophy [Unknown]
  - Unevaluable event [Unknown]
  - Decreased appetite [Unknown]
  - Dizziness [Unknown]
  - Dyspnoea [Unknown]
  - Hypotension [Unknown]
  - Myalgia [Unknown]
  - Urticaria [Unknown]
  - Skin disorder [Unknown]
  - Dysarthria [Unknown]
